FAERS Safety Report 7776931-1 (Version None)
Quarter: 2011Q3

REPORT INFORMATION
  Report Type: 
  Country: None (occurrence: None)
  Receive Date: 20110926
  Receipt Date: 20110920
  Transmission Date: 20111222
  Serious: Yes (Death)
  Sender: FDA-Public Use
  Company Number: US-ASTELLAS-2011US006080

PATIENT
  Sex: Female

DRUGS (10)
  1. PROGRAF [Suspect]
     Indication: HEART TRANSPLANT
     Dosage: UNK
     Route: 065
  2. TORADOL [Suspect]
     Indication: PRODUCT USED FOR UNKNOWN INDICATION
     Dosage: UNK
     Route: 065
  3. GANCICLOVIR [Concomitant]
     Indication: PROPHYLAXIS
     Dosage: UNK
     Route: 065
  4. MEROPENEM [Concomitant]
     Indication: PROPHYLAXIS
     Dosage: UNK
     Route: 065
  5. FLUCYTOSINE [Concomitant]
     Indication: PROPHYLAXIS
     Dosage: UNK
     Route: 065
  6. MYCOPHENOLATE MOFETIL (CELLCEPT) [Suspect]
     Indication: HEART TRANSPLANT
     Dosage: UNK
     Route: 065
  7. AMBISOME [Concomitant]
     Indication: CANDIDIASIS
     Dosage: UNK
     Route: 065
  8. LINEZOLID [Concomitant]
     Indication: PROPHYLAXIS
     Dosage: UNK
     Route: 065
  9. FLAGYL [Concomitant]
     Indication: PROPHYLAXIS
     Dosage: UNK
     Route: 065
  10. MICAFUNGIN INJECTION [Suspect]
     Indication: CANDIDIASIS
     Dosage: 150 MG, UID/QD
     Route: 042
     Dates: start: 20110722, end: 20110812

REACTIONS (4)
  - RESPIRATORY FAILURE [None]
  - RENAL FAILURE [None]
  - HEPATIC INFARCTION [None]
  - PANCREATITIS HAEMORRHAGIC [None]
